FAERS Safety Report 25980558 (Version 2)
Quarter: 2025Q4

REPORT INFORMATION
  Report Type: Spontaneous
  Country: US (occurrence: US)
  Receive Date: 20251030
  Receipt Date: 20251106
  Transmission Date: 20260118
  Serious: No
  Sender: BRISTOL-MYERS SQUIBB COMPANY
  Company Number: US-BRISTOL-MYERS SQUIBB COMPANY-2025-147708

PATIENT
  Age: 62 Year
  Sex: Female
  Weight: 61.23 kg

DRUGS (2)
  1. ORENCIA [Suspect]
     Active Substance: ABATACEPT
     Indication: Rheumatoid arthritis
     Route: 058
  2. ESTROGENS [Concomitant]
     Active Substance: ESTROGENS
     Indication: Rheumatoid arthritis

REACTIONS (7)
  - Muscle contractions involuntary [Unknown]
  - Fatigue [Unknown]
  - Muscular weakness [Unknown]
  - Nasal obstruction [Unknown]
  - Tinnitus [Unknown]
  - Muscle spasms [Unknown]
  - Myalgia [Unknown]
